FAERS Safety Report 14973749 (Version 1)
Quarter: 2018Q2

REPORT INFORMATION
  Report Type: Spontaneous
  Country: US (occurrence: US)
  Receive Date: 20180605
  Receipt Date: 20180605
  Transmission Date: 20180711
  Serious: Yes (Hospitalization)
  Sender: FDA-Public Use
  Company Number: US-IPSEN BIOPHARMACEUTICALS, INC.-2018-08240

PATIENT
  Age: 39 Year
  Sex: Male

DRUGS (3)
  1. XERMELO [Suspect]
     Active Substance: TELOTRISTAT ETHYL
     Indication: CARCINOID SYNDROME
     Route: 048
     Dates: start: 20170525
  2. LANREOTIDE AUTOGEL [Suspect]
     Active Substance: LANREOTIDE
     Indication: PRODUCT USED FOR UNKNOWN INDICATION
     Dosage: NOT REPORTED
     Route: 065
  3. XERMELO [Suspect]
     Active Substance: TELOTRISTAT ETHYL
     Route: 048
     Dates: start: 20170509, end: 201705

REACTIONS (10)
  - Diarrhoea [Unknown]
  - Dehydration [Unknown]
  - Haematuria [Unknown]
  - Flushing [Unknown]
  - Red cell distribution width increased [Unknown]
  - Nausea [Unknown]
  - Blood glucose increased [Unknown]
  - Abdominal pain [Unknown]
  - Malnutrition [Unknown]
  - Pain [Unknown]

NARRATIVE: CASE EVENT DATE: 201711
